FAERS Safety Report 15743987 (Version 3)
Quarter: 2019Q1

REPORT INFORMATION
  Report Type: Spontaneous
  Country: US (occurrence: US)
  Receive Date: 20181220
  Receipt Date: 20190121
  Transmission Date: 20190417
  Serious: Yes (Hospitalization)
  Sender: FDA-Public Use
  Company Number: US-GW PHARMA-201812USGW0646

PATIENT

DRUGS (9)
  1. LAMICTAL [Concomitant]
     Active Substance: LAMOTRIGINE
     Indication: PRODUCT USED FOR UNKNOWN INDICATION
     Dosage: 200 MILLIGRAM, BID
     Route: 065
  2. KEPPRA [Concomitant]
     Active Substance: LEVETIRACETAM
     Indication: PRODUCT USED FOR UNKNOWN INDICATION
     Dosage: 2000 MILLIGRAM, BID
     Route: 065
  3. ONFI [Concomitant]
     Active Substance: CLOBAZAM
     Indication: PRODUCT USED FOR UNKNOWN INDICATION
     Dosage: UNK (LESS THAN 10MG)
     Route: 065
     Dates: start: 20181205
  4. EPIDIOLEX [Suspect]
     Active Substance: CANNABIDIOL
     Dosage: UNK
     Route: 048
     Dates: start: 201812
  5. DEPAKOTE [Suspect]
     Active Substance: DIVALPROEX SODIUM
     Indication: PRODUCT USED FOR UNKNOWN INDICATION
     Dosage: 2250 MILLIGRAM, QD (1250 MG AM AND 1000MG PM)
     Route: 065
     Dates: end: 201812
  6. DILANTIN D.A. [Concomitant]
     Active Substance: PHENYTOIN SODIUM
     Indication: PRODUCT USED FOR UNKNOWN INDICATION
     Dosage: 750 MILLIGRAM, BID
     Route: 065
  7. ONFI [Concomitant]
     Active Substance: CLOBAZAM
     Dosage: 10 MILLIGRAM, BID
     Route: 065
     Dates: end: 20181205
  8. EPIDIOLEX [Suspect]
     Active Substance: CANNABIDIOL
     Indication: LENNOX-GASTAUT SYNDROME
     Dosage: 5.3MG/KG/DAY, (150 MILLIGRAM, BID)
     Route: 048
     Dates: start: 20181205, end: 20181211
  9. DEPAKOTE [Suspect]
     Active Substance: DIVALPROEX SODIUM
     Dosage: UNK
     Dates: start: 201812

REACTIONS (5)
  - Toxicity to various agents [Recovering/Resolving]
  - Glassy eyes [Recovering/Resolving]
  - Tremor [Recovering/Resolving]
  - Dysstasia [Recovering/Resolving]
  - Vomiting [Recovering/Resolving]

NARRATIVE: CASE EVENT DATE: 20181207
